FAERS Safety Report 16476039 (Version 1)
Quarter: 2019Q2

REPORT INFORMATION
  Report Type: Other
  Country: US (occurrence: US)
  Receive Date: 20190625
  Receipt Date: 20190625
  Transmission Date: 20190711
  Serious: No
  Sender: FDA-Public Use
  Company Number: US-DUCHESNAY INC.-2069581

PATIENT
  Age: 57 Year
  Sex: Female
  Weight: 81.82 kg

DRUGS (1)
  1. OSPHENA [Suspect]
     Active Substance: OSPEMIFENE
     Indication: VULVOVAGINAL DRYNESS
     Route: 048
     Dates: start: 20190530, end: 20190603

REACTIONS (5)
  - Asthenia [Recovered/Resolved]
  - Off label use [Recovered/Resolved]
  - Dizziness [Recovered/Resolved]
  - Confusional state [Recovered/Resolved]
  - Nasopharyngitis [Recovered/Resolved]

NARRATIVE: CASE EVENT DATE: 20190530
